FAERS Safety Report 6838791-2 (Version None)
Quarter: 2010Q3

REPORT INFORMATION
  Report Type: 
  Country: None (occurrence: None)
  Receive Date: 20100713
  Receipt Date: 20070801
  Transmission Date: 20110219
  Serious: No
  Sender: FDA-Public Use
  Company Number: US-PFIZER INC-2007047791

PATIENT
  Sex: Male
  Weight: 63.5 kg

DRUGS (8)
  1. CHANTIX [Suspect]
     Indication: SMOKING CESSATION THERAPY
     Dates: start: 20070501, end: 20070501
  2. PROSCAR [Concomitant]
     Indication: PROSTATIC DISORDER
  3. CARDURA [Concomitant]
  4. ZOCOR [Concomitant]
     Indication: BLOOD CHOLESTEROL INCREASED
  5. METOPROLOL [Concomitant]
     Indication: HYPERTENSION
  6. CLONAZEPAM [Concomitant]
     Indication: HYPERTENSION
  7. SERTRALINE HCL [Concomitant]
     Indication: DEPRESSION
  8. TAMSULOSIN HCL [Concomitant]

REACTIONS (4)
  - ABDOMINAL DISCOMFORT [None]
  - DECREASED APPETITE [None]
  - GASTRITIS [None]
  - NAUSEA [None]
